FAERS Safety Report 6285649-6 (Version None)
Quarter: 2009Q3

REPORT INFORMATION
  Report Type: 
  Country: None (occurrence: None)
  Receive Date: 20090727
  Receipt Date: 20090717
  Transmission Date: 20100115
  Serious: Yes (Death)
  Sender: FDA-Public Use
  Company Number: BE-MERCK-0907BEL00009

PATIENT
  Age: 65 Year
  Sex: Male
  Weight: 71 kg

DRUGS (2)
  1. CANCIDAS [Suspect]
     Route: 041
     Dates: start: 20071207, end: 20071224
  2. AMIKACIN [Concomitant]
     Indication: BACTERIAL INFECTION
     Route: 051
     Dates: start: 20090211, end: 20090211

REACTIONS (3)
  - ACUTE RESPIRATORY DISTRESS SYNDROME [None]
  - BACTERIAL INFECTION [None]
  - ORGAN FAILURE [None]
